FAERS Safety Report 4541832-9 (Version None)
Quarter: 2004Q4

REPORT INFORMATION
  Report Type: 
  Country: None (occurrence: None)
  Receive Date: 20041230
  Receipt Date: 20041221
  Transmission Date: 20050328
  Serious: Yes (Hospitalization, Other)
  Sender: FDA-Public Use
  Company Number: PHEH2004US13574

PATIENT
  Age: 58 Year
  Sex: Female

DRUGS (2)
  1. VIVELLE-DOT [Suspect]
     Indication: OSTEOPOROSIS
     Dosage: 0.05MG/DAY
     Route: 062
     Dates: start: 20000101
  2. LEXAPRO [Suspect]

REACTIONS (4)
  - DRUG WITHDRAWAL SYNDROME [None]
  - HEADACHE [None]
  - HEART INJURY [None]
  - TRANSIENT ISCHAEMIC ATTACK [None]
